FAERS Safety Report 7355877-7 (Version None)
Quarter: 2011Q1

REPORT INFORMATION
  Report Type: 
  Country: None (occurrence: None)
  Receive Date: 20110316
  Receipt Date: 20110308
  Transmission Date: 20110831
  Serious: Yes (Other)
  Sender: FDA-Public Use
  Company Number: US-JNJFOC-20110304770

PATIENT
  Age: 8 Year
  Sex: Male
  Weight: 33.57 kg

DRUGS (3)
  1. IMODIUM A-D [Suspect]
     Indication: DIARRHOEA
     Route: 048
  2. IMODIUM A-D [Suspect]
     Route: 048
  3. UNKNOWN MEDICATION [Concomitant]
     Route: 048

REACTIONS (1)
  - VOMITING [None]
